FAERS Safety Report 6471639-7 (Version None)
Quarter: 2009Q4

REPORT INFORMATION
  Report Type: 
  Country: None (occurrence: None)
  Receive Date: 20091203
  Receipt Date: 20080616
  Transmission Date: 20100525
  Serious: Yes (Death)
  Sender: FDA-Public Use
  Company Number: US-ELI_LILLY_AND_COMPANY-US200803002794

PATIENT
  Age: 21 Year
  Sex: Male

DRUGS (1)
  1. XIGRIS [Suspect]
     Indication: SEPSIS
     Dosage: UNK, UNK
     Dates: start: 20080307, end: 20080301

REACTIONS (2)
  - CEREBRAL HAEMORRHAGE [None]
  - ENCEPHALOMALACIA [None]
